FAERS Safety Report 16454088 (Version 3)
Quarter: 2019Q3

REPORT INFORMATION
  Report Type: Spontaneous
  Country: US (occurrence: US)
  Receive Date: 20190620
  Receipt Date: 20190826
  Transmission Date: 20191004
  Serious: Yes (Life-Threatening, Hospitalization, Other)
  Sender: FDA-Public Use
  Company Number: US-AUROBINDO-AUR-APL-2019-034407

PATIENT

DRUGS (5)
  1. AZITHROMYCIN ANHYDROUS. [Concomitant]
     Active Substance: AZITHROMYCIN ANHYDROUS
     Indication: PNEUMONIA
     Dosage: UNK
     Route: 065
  2. TRIMETHOPRIM+SULFAMETHOXAZOLE [Suspect]
     Active Substance: SULFAMETHOXAZOLE\TRIMETHOPRIM
     Indication: ACNE
     Dosage: UNK
     Route: 065
  3. LUTERA [Concomitant]
     Active Substance: ETHINYL ESTRADIOL\LEVONORGESTREL
     Indication: ORAL CONTRACEPTION
     Dosage: UNK
     Route: 065
  4. CEFTRIAXONE. [Concomitant]
     Active Substance: CEFTRIAXONE
     Indication: PRODUCT USED FOR UNKNOWN INDICATION
     Dosage: UNK
     Route: 030
  5. CLINDAMYCIN. [Concomitant]
     Active Substance: CLINDAMYCIN
     Indication: PRODUCT USED FOR UNKNOWN INDICATION
     Dosage: UNK
     Route: 061

REACTIONS (12)
  - Pneumothorax [Unknown]
  - Pharyngitis [Unknown]
  - Pyrexia [Unknown]
  - Chest discomfort [Unknown]
  - Tachypnoea [Unknown]
  - Pulmonary embolism [Unknown]
  - Acute respiratory failure [Unknown]
  - Lymphadenopathy [Unknown]
  - Pleural effusion [Unknown]
  - Acute respiratory distress syndrome [Unknown]
  - Hypoxia [Unknown]
  - Pneumomediastinum [Unknown]
